FAERS Safety Report 6676369-4 (Version None)
Quarter: 2010Q2

REPORT INFORMATION
  Report Type: 
  Country: None (occurrence: None)
  Receive Date: 20100408
  Receipt Date: 20100329
  Transmission Date: 20101027
  Serious: Yes (Death)
  Sender: FDA-Public Use
  Company Number: 2010AC000240

PATIENT
  Age: 66 Year
  Sex: Male

DRUGS (41)
  1. DIGOXIN [Suspect]
     Dosage: 0.25 MG;QD;PO
     Route: 048
     Dates: start: 20061101, end: 20061201
  2. DIGOXIN [Suspect]
     Dosage: 0.125 MG;QOD;PO
     Route: 048
     Dates: start: 20061201, end: 20070101
  3. REGLAN [Concomitant]
  4. OMEPRAZOLE [Concomitant]
  5. VASOTEC [Concomitant]
  6. SIMVASTATIN [Concomitant]
  7. LEVOTHYROXINE [Concomitant]
  8. NEURONTIN [Concomitant]
  9. DILTIAZEM HCL [Concomitant]
  10. MINOSIDIL [Concomitant]
  11. LEVAQUIN [Concomitant]
  12. FLAGYL [Concomitant]
  13. MEGACE [Concomitant]
  14. INSULIN [Concomitant]
  15. TOPROL-XL [Concomitant]
  16. CARDIZEM [Concomitant]
  17. RENAGEL [Concomitant]
  18. SOLU-MEDROL [Concomitant]
  19. COREG [Concomitant]
  20. CLONIDINE [Concomitant]
  21. CALCIUM [Concomitant]
  22. MULTI-VITAMINS [Concomitant]
  23. NARCAN [Concomitant]
  24. DOPAMINE HCL [Concomitant]
  25. ROMAZICON [Concomitant]
  26. ESMALOL [Concomitant]
  27. LABETALOL HCL [Concomitant]
  28. HYDRALAZINE HCL [Concomitant]
  29. MEGESTROL ACETATE [Concomitant]
  30. CYPROHEPTADINE HCL [Concomitant]
  31. NEXIUM [Concomitant]
  32. SENSIPAR [Concomitant]
  33. ALLEGRA [Concomitant]
  34. ALTACE [Concomitant]
  35. ROCEPHIN [Concomitant]
  36. VANCOMYCIN [Concomitant]
  37. WARFARIN SODIUM [Concomitant]
  38. LOVENOX [Concomitant]
  39. ATROPINE [Concomitant]
  40. VERSED [Concomitant]
  41. ATIVAN [Concomitant]

REACTIONS (40)
  - ACQUIRED DIAPHRAGMATIC EVENTRATION [None]
  - ANAEMIA [None]
  - ANHEDONIA [None]
  - AORTIC VALVE INCOMPETENCE [None]
  - AORTIC VALVE SCLEROSIS [None]
  - ARTHRALGIA [None]
  - ASTHENIA [None]
  - ATELECTASIS [None]
  - BUNDLE BRANCH BLOCK LEFT [None]
  - CARDIO-RESPIRATORY ARREST [None]
  - DIASTOLIC DYSFUNCTION [None]
  - DYSPNOEA [None]
  - ECONOMIC PROBLEM [None]
  - ELECTROCARDIOGRAM ST-T CHANGE [None]
  - EXERCISE TOLERANCE DECREASED [None]
  - FAMILY STRESS [None]
  - FATIGUE [None]
  - HYPERPHOSPHATAEMIA [None]
  - HYPOTENSION [None]
  - HYPOTHERMIA [None]
  - INJURY [None]
  - INSOMNIA [None]
  - MENTAL STATUS CHANGES [None]
  - MITRAL VALVE CALCIFICATION [None]
  - OEDEMA [None]
  - PAIN [None]
  - PARAESTHESIA [None]
  - PERIRECTAL ABSCESS [None]
  - PLEURAL EFFUSION [None]
  - PNEUMONIA [None]
  - PULMONARY OEDEMA [None]
  - QRS AXIS ABNORMAL [None]
  - RENAL FAILURE [None]
  - RESPIRATORY DISTRESS [None]
  - SEPSIS [None]
  - SOCIAL PROBLEM [None]
  - TACHYCARDIA [None]
  - TRICUSPID VALVE INCOMPETENCE [None]
  - VENTRICULAR HYPERTROPHY [None]
  - WEIGHT INCREASED [None]
